FAERS Safety Report 6555094-4 (Version None)
Quarter: 2010Q1

REPORT INFORMATION
  Report Type: 
  Country: None (occurrence: None)
  Receive Date: 20100126
  Receipt Date: 20100126
  Transmission Date: 20100710
  Serious: Yes (Other)
  Sender: FDA-Public Use
  Company Number: None

PATIENT
  Sex: Male
  Weight: 61.4 kg

DRUGS (1)
  1. AMPHETAMINE SALTS (GENERIC FOR ADDERALL) 30MG  CORPHARMA LLC [Suspect]
     Indication: AUTISM
     Dosage: 15MG(1/2) TABLET 3X DAILY ORALLY (047)
     Route: 048
     Dates: start: 20090920, end: 20100109

REACTIONS (5)
  - AGGRESSION [None]
  - ARRHYTHMIA [None]
  - CONVERSION DISORDER [None]
  - PALPITATIONS [None]
  - PRODUCT SUBSTITUTION ISSUE [None]
